FAERS Safety Report 8286417-6 (Version None)
Quarter: 2012Q2

REPORT INFORMATION
  Report Type: 
  Country: None (occurrence: None)
  Receive Date: 20120411
  Receipt Date: 20120326
  Transmission Date: 20120825
  Serious: Yes (Other)
  Sender: FDA-Public Use
  Company Number: 2012FO001053

PATIENT
  Sex: Male

DRUGS (1)
  1. SOLARAZE [Suspect]
     Indication: ACTINIC KERATOSIS
     Dosage: TOP
     Route: 061

REACTIONS (2)
  - BASAL CELL CARCINOMA [None]
  - APPLICATION SITE ATROPHY [None]
